FAERS Safety Report 24894533 (Version 1)
Quarter: 2025Q1

REPORT INFORMATION
  Report Type: Spontaneous
  Country: US (occurrence: None)
  Receive Date: 20250127
  Receipt Date: 20250127
  Transmission Date: 20250409
  Serious: No
  Sender: FDA-CTU
  Company Number: None

PATIENT
  Age: 76 Year
  Sex: Female
  Weight: 70.2 kg

DRUGS (9)
  1. IBANDRONATE SODIUM [Suspect]
     Active Substance: IBANDRONATE SODIUM
     Indication: Osteoporosis
     Route: 048
     Dates: start: 20230401, end: 20240915
  2. LEVOTHYROXINE [Concomitant]
     Active Substance: LEVOTHYROXINE
  3. ATORVASTATIN [Concomitant]
     Active Substance: ATORVASTATIN
  4. METOPROLOL [Concomitant]
     Active Substance: METOPROLOL
  5. DEVICE [Concomitant]
     Active Substance: DEVICE
  6. ASPIRIN [Concomitant]
     Active Substance: ASPIRIN
     Route: 048
     Dates: start: 20230401, end: 20240915
  7. VITAMIN D3 [Concomitant]
     Active Substance: CHOLECALCIFEROL
     Route: 048
     Dates: start: 20230401, end: 20240915
  8. VIACTIVE CALCIUM [Concomitant]
     Route: 048
     Dates: start: 20230401, end: 20240915
  9. DRY EYE DROP [Concomitant]

REACTIONS (5)
  - Muscle spasms [None]
  - Pain in extremity [None]
  - Pain in extremity [None]
  - Muscle spasms [None]
  - Middle insomnia [None]
